FAERS Safety Report 6657930-X (Version None)
Quarter: 2010Q1

REPORT INFORMATION
  Report Type: 
  Country: None (occurrence: None)
  Receive Date: 20100330
  Receipt Date: 20100322
  Transmission Date: 20100710
  Serious: Yes (Death, Other)
  Sender: FDA-Public Use
  Company Number: DE-ROCHE-693495

PATIENT

DRUGS (1)
  1. BEVACIZUMAB [Suspect]
     Indication: BREAST CANCER
     Route: 065

REACTIONS (5)
  - IMPAIRED HEALING [None]
  - LARGE INTESTINE PERFORATION [None]
  - MALIGNANT NEOPLASM PROGRESSION [None]
  - PERITONITIS [None]
  - WOUND INFECTION [None]
